FAERS Safety Report 25661406 (Version 2)
Quarter: 2025Q3

REPORT INFORMATION
  Report Type: Spontaneous
  Country: CH (occurrence: CH)
  Receive Date: 20250808
  Receipt Date: 20250822
  Transmission Date: 20251020
  Serious: No
  Sender: PFIZER
  Company Number: CH-PFIZER INC-202500159149

PATIENT
  Sex: Female

DRUGS (1)
  1. GENOTROPIN [Suspect]
     Active Substance: SOMATROPIN
     Dosage: NEED TO INJECT 4 TIMES EVERY 24 HOURS

REACTIONS (1)
  - Device malfunction [Unknown]
